FAERS Safety Report 6127956-3 (Version None)
Quarter: 2009Q1

REPORT INFORMATION
  Report Type: 
  Country: None (occurrence: None)
  Receive Date: 20090323
  Receipt Date: 20090309
  Transmission Date: 20090719
  Serious: Yes (Hospitalization, Other)
  Sender: FDA-Public Use
  Company Number: DE-ELI_LILLY_AND_COMPANY-DE200902005848

PATIENT
  Sex: Male
  Weight: 60 kg

DRUGS (8)
  1. CYMBALTA [Suspect]
     Dosage: UNK, UNKNOWN
     Route: 048
     Dates: start: 20090220, end: 20090220
  2. GABAPENTIN [Concomitant]
     Dosage: UNK, UNKNOWN
     Route: 065
     Dates: start: 20090220, end: 20090220
  3. KEPPRA [Concomitant]
     Dosage: UNK, UNKNOWN
     Route: 065
     Dates: start: 20090220, end: 20090220
  4. METOCLOPRAMIDE [Concomitant]
     Dosage: UNK, UNKNOWN
     Route: 065
     Dates: start: 20090220, end: 20090220
  5. TILIDIN [Concomitant]
     Dosage: UNK, UNKNOWN
     Route: 065
     Dates: start: 20090220, end: 20090220
  6. SEROQUEL [Concomitant]
     Dosage: UNK, UNKNOWN
     Route: 065
     Dates: start: 20090220, end: 20090220
  7. TEGRETOL [Concomitant]
     Dosage: UNK, UNKNOWN
     Route: 065
     Dates: start: 20090220, end: 20090220
  8. MIRTAZAPINE [Concomitant]
     Dosage: UNK, UNKNOWN
     Route: 065
     Dates: start: 20090220, end: 20090220

REACTIONS (5)
  - DIARRHOEA [None]
  - GASTROINTESTINAL SOUNDS ABNORMAL [None]
  - MUSCLE CONTRACTIONS INVOLUNTARY [None]
  - SOMNOLENCE [None]
  - SUICIDE ATTEMPT [None]
